FAERS Safety Report 8119421-9 (Version None)
Quarter: 2012Q1

REPORT INFORMATION
  Report Type: 
  Country: None (occurrence: None)
  Receive Date: 20120203
  Receipt Date: 20120126
  Transmission Date: 20120608
  Serious: Yes (Hospitalization, Other)
  Sender: FDA-Public Use
  Company Number: 2012SP005059

PATIENT
  Sex: Male

DRUGS (4)
  1. VICTRELIS [Suspect]
     Indication: HEPATITIS C
  2. LISINOPRIL [Suspect]
     Indication: BLOOD PRESSURE
  3. PEGASYS [Suspect]
     Indication: HEPATITIS C
     Dates: start: 20120106
  4. RIBAVIRIN [Suspect]
     Indication: HEPATITIS C
     Dates: start: 20120107

REACTIONS (4)
  - NECK PAIN [None]
  - LOCAL SWELLING [None]
  - LOSS OF CONSCIOUSNESS [None]
  - DYSPHAGIA [None]
